FAERS Safety Report 7395343-6 (Version None)
Quarter: 2011Q2

REPORT INFORMATION
  Report Type: 
  Country: None (occurrence: None)
  Receive Date: 20110405
  Receipt Date: 20110330
  Transmission Date: 20111010
  Serious: Yes (Other)
  Sender: FDA-Public Use
  Company Number: US-PFIZER INC-2010074098

PATIENT
  Age: 62 Year
  Sex: Female
  Weight: 87.075 kg

DRUGS (3)
  1. EFFEXOR XR [Suspect]
     Indication: DEPRESSION
     Dosage: UNK, ONCE DAILY
     Dates: start: 20100101, end: 20100101
  2. LEXAPRO [Suspect]
     Indication: DEPRESSION
     Dosage: UNK
     Dates: end: 20100101
  3. XANAX XR [Suspect]
     Indication: RELAXATION THERAPY
     Dosage: UNK, AS NEEDED BEFORE BEDTIME

REACTIONS (3)
  - TACHYCARDIA [None]
  - DEPRESSION [None]
  - INSOMNIA [None]
